FAERS Safety Report 12609186 (Version 1)
Quarter: 2016Q3

REPORT INFORMATION
  Report Type: Report from Study
  Country: US (occurrence: US)
  Receive Date: 20160801
  Receipt Date: 20160801
  Transmission Date: 20161109
  Serious: Yes (Death)
  Sender: FDA-Public Use
  Company Number: US-ROCHE-1805464

PATIENT
  Age: 50 Year
  Sex: Male

DRUGS (6)
  1. RITUXIMAB [Suspect]
     Active Substance: RITUXIMAB
     Indication: CENTRAL NERVOUS SYSTEM LYMPHOMA
     Route: 042
  2. LEUCOVORIN. [Concomitant]
     Active Substance: LEUCOVORIN
     Route: 048
  3. METHOTREXATE. [Suspect]
     Active Substance: METHOTREXATE
     Indication: CENTRAL NERVOUS SYSTEM LYMPHOMA
     Dosage: 8 G/M2/DOSE OVER 4 HOURS
     Route: 042
  4. NAHCO3 [Concomitant]
     Active Substance: SODIUM BICARBONATE
     Indication: PREMEDICATION
     Dosage: 150 MEQ/L AT 150-200 CC/H OVER 4 HOURS
     Route: 065
  5. ARA-C [Suspect]
     Active Substance: CYTARABINE
     Indication: CENTRAL NERVOUS SYSTEM LYMPHOMA
     Route: 037
  6. KCL [Concomitant]
     Active Substance: POTASSIUM CHLORIDE
     Indication: PREMEDICATION
     Dosage: 20MEQ/L AT 150-200 CC/HOUR OVER 4 HOURS
     Route: 065

REACTIONS (2)
  - Eosinophilia [Fatal]
  - Adverse drug reaction [Fatal]
